FAERS Safety Report 8553751-1 (Version None)
Quarter: 2012Q3

REPORT INFORMATION
  Report Type: 
  Country: None (occurrence: None)
  Receive Date: 20120731
  Receipt Date: 20120727
  Transmission Date: 20120928
  Serious: Yes (Hospitalization)
  Sender: FDA-Public Use
  Company Number: US-GLAXOSMITHKLINE-A0984963B

PATIENT
  Age: 81 Year
  Sex: Male
  Weight: 70.5 kg

DRUGS (2)
  1. CEFPODOXIME PROXETIL [Concomitant]
  2. ELTROMBOPAG [Suspect]
     Indication: THROMBOCYTOPENIA
     Dosage: 200MG PER DAY
     Dates: start: 20120706

REACTIONS (1)
  - CHEST PAIN [None]
